FAERS Safety Report 5223789-0 (Version None)
Quarter: 2007Q1

REPORT INFORMATION
  Report Type: 
  Country: None (occurrence: None)
  Receive Date: 20070130
  Receipt Date: 20070123
  Transmission Date: 20070707
  Serious: Yes (Life-Threatening, Other)
  Sender: FDA-Public Use
  Company Number: GB-BAYER-200710060BNE

PATIENT
  Age: 72 Year
  Sex: Female

DRUGS (5)
  1. CIPROFLOXACIN [Suspect]
     Route: 048
     Dates: start: 20061111, end: 20061113
  2. ATENOLOL [Concomitant]
  3. DIAZEPAM [Concomitant]
     Dosage: TOTAL DAILY DOSE: 12 MG
  4. ENOXAPARIN SODIUM [Concomitant]
     Route: 058
  5. LOPRAMINE HYDROCHLORIDE [Concomitant]
     Route: 048

REACTIONS (2)
  - ERYTHEMA [None]
  - RASH MACULAR [None]
